APPROVED DRUG PRODUCT: EVEROLIMUS
Active Ingredient: EVEROLIMUS
Strength: 3MG
Dosage Form/Route: TABLET, FOR SUSPENSION;ORAL
Application: A217640 | Product #002 | TE Code: AB
Applicant: NATCO PHARMA LTD
Approved: Jan 28, 2025 | RLD: No | RS: No | Type: RX